FAERS Safety Report 9108186 (Version 1)
Quarter: 2013Q1

REPORT INFORMATION
  Report Type: Spontaneous
  Country: ES (occurrence: ES)
  Receive Date: 20130221
  Receipt Date: 20130221
  Transmission Date: 20140127
  Serious: Yes (Hospitalization)
  Sender: FDA-Public Use
  Company Number: ES-PFIZER INC-2013063243

PATIENT
  Age: 6 Year
  Sex: Female

DRUGS (1)
  1. SERTRALINE [Suspect]
     Indication: DEPRESSION
     Dosage: 50 MG, 1X/DAY
     Route: 048
     Dates: start: 201207, end: 20130111

REACTIONS (3)
  - Hypernatraemia [Not Recovered/Not Resolved]
  - Hyperchloraemia [Not Recovered/Not Resolved]
  - Blood prolactin increased [Not Recovered/Not Resolved]
